FAERS Safety Report 20935867 (Version 1)
Quarter: 2022Q2

REPORT INFORMATION
  Report Type: Report from Study
  Country: AU (occurrence: AU)
  Receive Date: 20220609
  Receipt Date: 20220609
  Transmission Date: 20220721
  Serious: Yes (Death, Other)
  Sender: FDA-Public Use
  Company Number: AU-SUN PHARMACEUTICAL INDUSTRIES LTD-2022RR-340096

PATIENT
  Age: 33 Year
  Sex: Male

DRUGS (7)
  1. DIAZEPAM [Suspect]
     Active Substance: DIAZEPAM
     Indication: Product used for unknown indication
     Dosage: UNK
     Route: 065
  2. GABAPENTIN [Suspect]
     Active Substance: GABAPENTIN
     Indication: Product used for unknown indication
     Dosage: UNK
     Route: 065
  3. MORPHINE [Suspect]
     Active Substance: MORPHINE
     Indication: Headache
     Dosage: 20-40 MILLIGRAM, PRN
     Route: 065
  4. MORPHINE [Suspect]
     Active Substance: MORPHINE
     Dosage: 200 MILLIGRAM, UNK
     Route: 048
  5. MORPHINE [Suspect]
     Active Substance: MORPHINE
     Dosage: 535-595 MG, UNK
     Route: 048
  6. OXYCODONE [Suspect]
     Active Substance: OXYCODONE
     Indication: Headache
     Dosage: 80 MILLIGRAM, BID, UP-TITRATED OVER ADMISSION, WAS INCREASED AND 1 X DOSE 80 MG GIVEN
     Route: 048
  7. OXYCODONE [Suspect]
     Active Substance: OXYCODONE
     Dosage: 120 MILLIGRAM, UNK
     Route: 048

REACTIONS (1)
  - Toxicity to various agents [Fatal]
